FAERS Safety Report 6514918-7 (Version None)
Quarter: 2009Q4

REPORT INFORMATION
  Report Type: 
  Country: None (occurrence: None)
  Receive Date: 20091223
  Receipt Date: 20091211
  Transmission Date: 20100525
  Serious: Yes (Other)
  Sender: FDA-Public Use
  Company Number: US-CELGENEUS-163-20785-09110723

PATIENT
  Sex: Female

DRUGS (4)
  1. THALOMID [Suspect]
     Indication: MULTIPLE MYELOMA
     Route: 048
     Dates: start: 20081101, end: 20090901
  2. ALKERAN [Concomitant]
     Indication: MULTIPLE MYELOMA
     Route: 065
  3. ALKERAN [Concomitant]
     Route: 065
  4. PREDNISONE [Concomitant]
     Indication: MULTIPLE MYELOMA
     Route: 065
     Dates: start: 20081101

REACTIONS (3)
  - PALPABLE PURPURA [None]
  - PRURITUS [None]
  - VASCULITIS [None]
